FAERS Safety Report 10192190 (Version 1)
Quarter: 2014Q2

REPORT INFORMATION
  Report Type: Spontaneous
  Country: JP (occurrence: None)
  Receive Date: 20140521
  Receipt Date: 20140521
  Transmission Date: 20141212
  Serious: Yes (Hospitalization)
  Sender: FDA-Public Use
  Company Number: 2014P1004058

PATIENT
  Age: 85 Year
  Sex: Male

DRUGS (2)
  1. HYDROCHLOROTHIAZIDE [Suspect]
     Indication: HYPERTENSION
     Dates: end: 201010
  2. VALSARTAN POTASSIUM [Suspect]
     Indication: HYPERTENSION
     Dates: end: 201010

REACTIONS (6)
  - Hyponatraemia [None]
  - Skin turgor decreased [None]
  - Blood chloride decreased [None]
  - Hypovolaemia [None]
  - Drug interaction [None]
  - Renin decreased [None]
